FAERS Safety Report 14571468 (Version 1)
Quarter: 2018Q1

REPORT INFORMATION
  Report Type: Spontaneous
  Country: US (occurrence: US)
  Receive Date: 20180223
  Receipt Date: 20180223
  Transmission Date: 20180509
  Serious: No
  Sender: FDA-Public Use
  Company Number: None

PATIENT
  Age: 64 Year
  Sex: Female

DRUGS (1)
  1. CAPECITABINE TAB 500MG [Suspect]
     Active Substance: CAPECITABINE
     Dosage: 500MG 3Q12H DAY 1 ORAL
     Route: 048

REACTIONS (2)
  - Urinary tract infection [None]
  - Gastrointestinal candidiasis [None]

NARRATIVE: CASE EVENT DATE: 20180223
